FAERS Safety Report 16197148 (Version 1)
Quarter: 2019Q2

REPORT INFORMATION
  Report Type: Spontaneous
  Country: US (occurrence: US)
  Receive Date: 20190415
  Receipt Date: 20190415
  Transmission Date: 20190711
  Serious: No
  Sender: FDA-Public Use
  Company Number: US-PFIZER INC-2019158975

PATIENT
  Age: 82 Year
  Sex: Female
  Weight: 55 kg

DRUGS (4)
  1. GABAPENTIN. [Suspect]
     Active Substance: GABAPENTIN
     Dosage: UNK
  2. REMODULIN [Suspect]
     Active Substance: TREPROSTINIL
     Dosage: UNK (82 NG/KG/MIN, FREQUENCY: CONTINUOUS)
     Route: 042
     Dates: start: 20181221
  3. REVATIO [Concomitant]
     Active Substance: SILDENAFIL CITRATE
     Dosage: UNK
  4. DILTIAZEM. [Concomitant]
     Active Substance: DILTIAZEM
     Dosage: UNK

REACTIONS (3)
  - Gait disturbance [Unknown]
  - Diarrhoea [Unknown]
  - Dizziness [Unknown]
